FAERS Safety Report 7456836-6 (Version None)
Quarter: 2011Q2

REPORT INFORMATION
  Report Type: 
  Country: None (occurrence: None)
  Receive Date: 20110504
  Receipt Date: 20110425
  Transmission Date: 20111010
  Serious: No
  Sender: FDA-Public Use
  Company Number: US-BIOGENIDEC-2010BI039659

PATIENT
  Sex: Female

DRUGS (2)
  1. TYSABRI [Suspect]
     Indication: MULTIPLE SCLEROSIS
     Route: 042
     Dates: start: 20071023, end: 20071212
  2. TYSABRI [Suspect]
     Route: 042
     Dates: start: 20090724

REACTIONS (6)
  - FALL [None]
  - NEURALGIA [None]
  - DIPLOPIA [None]
  - MUSCULAR WEAKNESS [None]
  - APHASIA [None]
  - VISION BLURRED [None]
